FAERS Safety Report 8249771-7 (Version None)
Quarter: 2012Q1

REPORT INFORMATION
  Report Type: 
  Country: None (occurrence: None)
  Receive Date: 20120328
  Receipt Date: 20120320
  Transmission Date: 20120608
  Serious: Yes (Other)
  Sender: FDA-Public Use
  Company Number: TPA2012A01558

PATIENT
  Age: 57 Year
  Sex: Female

DRUGS (5)
  1. METFORMIN HCL [Concomitant]
  2. ACTOS [Suspect]
     Indication: DIABETES MELLITUS
     Dates: start: 20080101, end: 20100101
  3. LISINOPRIL [Concomitant]
  4. GLYBURIDE [Concomitant]
  5. JANUVIA [Concomitant]

REACTIONS (2)
  - TREATMENT NONCOMPLIANCE [None]
  - RENAL CANCER [None]
